FAERS Safety Report 6716246-3 (Version None)
Quarter: 2010Q2

REPORT INFORMATION
  Report Type: 
  Country: None (occurrence: None)
  Receive Date: 20100506
  Receipt Date: 20100506
  Transmission Date: 20101027
  Serious: Yes (Hospitalization)
  Sender: FDA-Public Use
  Company Number: None

PATIENT
  Sex: Female
  Weight: 72 kg

DRUGS (3)
  1. OMALIZUMAB 150MG INJECTION GENENTECH [Suspect]
     Indication: ASTHMA
     Dosage: 150-375MG EVERY 2 WEEKS SQ
     Route: 058
     Dates: start: 20080210, end: 20100203
  2. IBUPROFEN TABLETS [Suspect]
     Indication: HEADACHE
     Dosage: 200-400MG DAILY PRN PO
     Route: 048
     Dates: start: 20100127, end: 20100129
  3. IBUPROFEN TABLETS [Suspect]
     Indication: PAIN
     Dosage: 200-400MG DAILY PRN PO
     Route: 048
     Dates: start: 20100127, end: 20100129

REACTIONS (2)
  - CONTUSION [None]
  - THROMBOCYTOPENIA [None]
